FAERS Safety Report 5341227-4 (Version None)
Quarter: 2007Q2

REPORT INFORMATION
  Report Type: 
  Country: None (occurrence: None)
  Receive Date: 20070404
  Receipt Date: 20070108
  Transmission Date: 20071010
  Serious: Yes (Other)
  Sender: FDA-Public Use
  Company Number: 2007019862

PATIENT
  Age: 7 Year
  Sex: Male

DRUGS (3)
  1. GEODON [Suspect]
     Dates: start: 20061113, end: 20061114
  2. ALL OTHER THERAPEUTIC PRODUCTS (ALL OTHER THERAPEUTIC PRODUCTS) [Suspect]
     Indication: BIPOLAR DISORDER
     Dosage: 200 MG ( 1 IN 1 D)
     Dates: start: 20061113, end: 20061114
  3. CONCERTA [Concomitant]

REACTIONS (5)
  - CHEST PAIN [None]
  - DYSPNOEA [None]
  - EXTRAPYRAMIDAL DISORDER [None]
  - HYPERSENSITIVITY [None]
  - NAUSEA [None]
